FAERS Safety Report 9167944 (Version 2)
Quarter: 2013Q1

REPORT INFORMATION
  Report Type: Spontaneous
  Country: US (occurrence: None)
  Receive Date: 20130227
  Receipt Date: 20130329
  Transmission Date: 20140127
  Serious: Yes (Other)
  Sender: FDA-Public Use
  Company Number: 2013034820

PATIENT
  Age: 10 Year
  Sex: Female

DRUGS (4)
  1. IVIG [Suspect]
     Indication: KAWASAKI^S DISEASE
  2. ASPIRIN (ACETYLSALICYLIC ACID) [Suspect]
  3. DEXTROMETHORPHAN (DEXTROMETHORPHAN) [Concomitant]
  4. IBUPROFEN (IBUPROFEN) [Concomitant]

REACTIONS (2)
  - Erythema multiforme [None]
  - Mycoplasma infection [None]
